FAERS Safety Report 7726009-8 (Version None)
Quarter: 2011Q3

REPORT INFORMATION
  Report Type: 
  Country: None (occurrence: None)
  Receive Date: 20110902
  Receipt Date: 20110829
  Transmission Date: 20111222
  Serious: No
  Sender: FDA-Public Use
  Company Number: JP-ROCHE-798948

PATIENT
  Age: 53 Year
  Sex: Female

DRUGS (2)
  1. NAVELBINE [Suspect]
     Indication: BREAST CANCER
     Dosage: UNCERTAIN DOSAGE AND THREE COURSES
     Route: 042
     Dates: start: 20110601, end: 20110101
  2. HERCEPTIN [Suspect]
     Indication: BREAST CANCER
     Dosage: NOTE: DOSAGE IS UNCERTAIN
     Route: 041
     Dates: start: 20110601

REACTIONS (1)
  - UNEVALUABLE EVENT [None]
